FAERS Safety Report 17408607 (Version 2)
Quarter: 2020Q1

REPORT INFORMATION
  Report Type: Spontaneous
  Country: US (occurrence: US)
  Receive Date: 20200212
  Receipt Date: 20200306
  Transmission Date: 20200409
  Serious: Yes (Hospitalization)
  Sender: FDA-Public Use
  Company Number: US-VERTEX PHARMACEUTICALS-2020-002330

PATIENT
  Age: 55 Year
  Sex: Male
  Weight: 91 kg

DRUGS (5)
  1. TOBRAMYCIN. [Suspect]
     Active Substance: TOBRAMYCIN
     Indication: HOSPITALISATION
     Dosage: UNK
     Route: 065
  2. HYPERTONIC SALINE SOLUTION [Concomitant]
     Active Substance: SODIUM CHLORIDE
  3. DORNASE [Concomitant]
     Active Substance: STREPTODORNASE\STREPTOKINASE
  4. ALBUTEROL [SALBUTAMOL] [Concomitant]
     Active Substance: ALBUTEROL
  5. TRIKAFTA [Suspect]
     Active Substance: ELEXACAFTOR\IVACAFTOR\TEZACAFTOR
     Indication: CYSTIC FIBROSIS
     Dosage: 2 TABS (100 MG ELAXACAFTOR/50 MG TEZACAFTOR/75 MG IVACAFTOR) AM; 1TAB(150 MG IVACAFTOR) PM
     Route: 048
     Dates: start: 20191221

REACTIONS (3)
  - Hospitalisation [Not Recovered/Not Resolved]
  - Tongue discomfort [Not Recovered/Not Resolved]
  - Dysgeusia [Not Recovered/Not Resolved]

NARRATIVE: CASE EVENT DATE: 202001
